FAERS Safety Report 5988245-0 (Version None)
Quarter: 2008Q4

REPORT INFORMATION
  Report Type: 
  Country: None (occurrence: None)
  Receive Date: 20081210
  Receipt Date: 20081205
  Transmission Date: 20090506
  Serious: Yes (Life-Threatening, Other)
  Sender: FDA-Public Use
  Company Number: JP-JNJFOC-20081103881

PATIENT
  Sex: Male
  Weight: 53 kg

DRUGS (5)
  1. DUROTEP PATCH [Suspect]
     Indication: CANCER PAIN
     Route: 062
  2. LOXONIN [Concomitant]
     Indication: CANCER PAIN
     Route: 048
  3. SELBEX [Concomitant]
     Indication: GASTRITIS
     Route: 048
  4. URSO 250 [Concomitant]
     Indication: LIVER DISORDER
     Route: 048
  5. HYPERTENSION [Concomitant]
     Indication: HYPERTENSION
     Route: 048

REACTIONS (3)
  - HEPATIC FUNCTION ABNORMAL [None]
  - SOMNOLENCE [None]
  - STEVENS-JOHNSON SYNDROME [None]
